FAERS Safety Report 16046450 (Version 5)
Quarter: 2019Q4

REPORT INFORMATION
  Report Type: Report from Study
  Country: DE (occurrence: DE)
  Receive Date: 20190307
  Receipt Date: 20191017
  Transmission Date: 20200122
  Serious: Yes (Other)
  Sender: FDA-Public Use
  Company Number: PHHY2019DE049331

PATIENT
  Sex: Female
  Weight: 101 kg

DRUGS (12)
  1. COSENTYX [Suspect]
     Active Substance: SECUKINUMAB
     Dosage: 300 MG, UNK (ONCE)
     Route: 065
     Dates: start: 20181113
  2. COSENTYX [Suspect]
     Active Substance: SECUKINUMAB
     Indication: PSORIATIC ARTHROPATHY
     Dosage: 300 MG, UNK (ONCE)
     Route: 065
     Dates: start: 20180915
  3. COSENTYX [Suspect]
     Active Substance: SECUKINUMAB
     Dosage: 300 MG, UNK (ONCE)
     Route: 065
     Dates: start: 20180922
  4. FOLIC ACID. [Concomitant]
     Active Substance: FOLIC ACID
     Indication: PSORIATIC ARTHROPATHY
     Dosage: 5 MG, QW
     Route: 048
     Dates: start: 20141216
  5. COSENTYX [Suspect]
     Active Substance: SECUKINUMAB
     Dosage: 300 MG, UNK (ONCE)
     Route: 065
     Dates: start: 20181013
  6. MTX [Concomitant]
     Active Substance: METHOTREXATE SODIUM
     Indication: PSORIATIC ARTHROPATHY
     Dosage: 15 MG, QW
     Route: 058
     Dates: start: 20180226, end: 20190124
  7. MTX [Concomitant]
     Active Substance: METHOTREXATE SODIUM
     Dosage: 10 MG, QW
     Route: 058
     Dates: start: 20190125, end: 20190416
  8. MTX [Concomitant]
     Active Substance: METHOTREXATE SODIUM
     Dosage: 12.5 MG, QW
     Route: 058
     Dates: start: 20190417
  9. COSENTYX [Suspect]
     Active Substance: SECUKINUMAB
     Dosage: 300 MG, UNK (ONCE)
     Route: 065
     Dates: start: 20180929
  10. COSENTYX [Suspect]
     Active Substance: SECUKINUMAB
     Dosage: 300 MG, UNK (ONCE)
     Route: 065
     Dates: start: 20181006
  11. COSENTYX [Suspect]
     Active Substance: SECUKINUMAB
     Dosage: 300 MG, UNK (ONCE)
     Route: 065
     Dates: start: 20181213
  12. COSENTYX [Suspect]
     Active Substance: SECUKINUMAB
     Dosage: 300 MG, UNK (ONCE)
     Route: 065
     Dates: start: 20190113

REACTIONS (5)
  - Pulpitis dental [Unknown]
  - Ear infection [Unknown]
  - Klebsiella infection [Recovered/Resolved]
  - Urinary tract infection [Recovered/Resolved]
  - Hypoacusis [Unknown]

NARRATIVE: CASE EVENT DATE: 20181207
